FAERS Safety Report 7904597-6 (Version None)
Quarter: 2011Q4

REPORT INFORMATION
  Report Type: 
  Country: None (occurrence: None)
  Receive Date: 20111109
  Receipt Date: 20110224
  Transmission Date: 20120403
  Serious: Yes (Other)
  Sender: FDA-Public Use
  Company Number: US-GLAXOSMITHKLINE-A0915628A

PATIENT
  Age: 49 Year
  Sex: Female

DRUGS (1)
  1. AVANDIA [Suspect]
     Indication: DIABETES MELLITUS
     Dosage: 4MG PER DAY
     Route: 048
     Dates: start: 20000901, end: 20021201

REACTIONS (12)
  - CEREBROVASCULAR ACCIDENT [None]
  - ELECTROENCEPHALOGRAM ABNORMAL [None]
  - FATIGUE [None]
  - AMNESIA [None]
  - HEADACHE [None]
  - CONFUSIONAL STATE [None]
  - SINUS DISORDER [None]
  - COORDINATION ABNORMAL [None]
  - BACK PAIN [None]
  - DYSPNOEA [None]
  - SPEECH DISORDER [None]
  - CONVULSION [None]
